FAERS Safety Report 5694588-0 (Version None)
Quarter: 2008Q2

REPORT INFORMATION
  Report Type: 
  Country: None (occurrence: None)
  Receive Date: 20080404
  Receipt Date: 20080328
  Transmission Date: 20081010
  Serious: Yes (Other)
  Sender: FDA-Public Use
  Company Number: US-ROCHE-552921

PATIENT
  Sex: Female
  Weight: 23.1 kg

DRUGS (3)
  1. TAMIFLU [Suspect]
     Indication: DRUG USE FOR UNKNOWN INDICATION
     Route: 065
     Dates: start: 20080306, end: 20080310
  2. AUGMENTIN '125' [Concomitant]
  3. AUGMENTIN '125' [Concomitant]

REACTIONS (2)
  - MYOSITIS [None]
  - NEUTROPENIA [None]
